FAERS Safety Report 15027042 (Version 4)
Quarter: 2018Q3

REPORT INFORMATION
  Report Type: Spontaneous
  Country: US (occurrence: US)
  Receive Date: 20180619
  Receipt Date: 20180829
  Transmission Date: 20181010
  Serious: Yes (Death, Hospitalization)
  Sender: FDA-Public Use
  Company Number: US-JNJFOC-20180609592

PATIENT
  Age: 72 Year
  Sex: Male

DRUGS (5)
  1. IMBRUVICA [Suspect]
     Active Substance: IBRUTINIB
     Indication: CHRONIC LYMPHOCYTIC LEUKAEMIA
     Dosage: 280 MG, QD
     Route: 048
     Dates: start: 20180517
  2. XANAX [Concomitant]
     Active Substance: ALPRAZOLAM
  3. FERROUS SULFATE. [Concomitant]
     Active Substance: FERROUS SULFATE
  4. ACYCLOVIR. [Concomitant]
     Active Substance: ACYCLOVIR
  5. BACTRIM DS [Concomitant]
     Active Substance: SULFAMETHOXAZOLE\TRIMETHOPRIM
     Dosage: 800 UNK, TID

REACTIONS (6)
  - Disease progression [Unknown]
  - Incorrect dose administered [Unknown]
  - Off label use [Unknown]
  - Sepsis [Fatal]
  - Febrile neutropenia [Fatal]
  - Pneumonia [Unknown]

NARRATIVE: CASE EVENT DATE: 201805
